FAERS Safety Report 24796323 (Version 2)
Quarter: 2025Q2

REPORT INFORMATION
  Report Type: Spontaneous
  Country: US (occurrence: US)
  Receive Date: 20250101
  Receipt Date: 20250418
  Transmission Date: 20250717
  Serious: No
  Sender: SANOFI AVENTIS
  Company Number: US-SA-2024SA384083

PATIENT
  Age: 41 Year
  Sex: Female
  Weight: 73.64 kg

DRUGS (5)
  1. DUPIXENT [Suspect]
     Active Substance: DUPILUMAB
     Indication: Eosinophilic oesophagitis
     Dosage: 300 MG, QW
     Route: 058
     Dates: start: 202304
  2. PANTOPRAZOLE [Suspect]
     Active Substance: PANTOPRAZOLE
  3. OMEPRAZOLE [Concomitant]
     Active Substance: OMEPRAZOLE
  4. PEPCID [Concomitant]
     Active Substance: FAMOTIDINE
  5. TUMS [Concomitant]
     Active Substance: CALCIUM CARBONATE

REACTIONS (2)
  - Stress [Unknown]
  - Eosinophilic oesophagitis [Recovering/Resolving]

NARRATIVE: CASE EVENT DATE: 20241101
